FAERS Safety Report 4535155-1 (Version None)
Quarter: 2004Q4

REPORT INFORMATION
  Report Type: 
  Country: None (occurrence: None)
  Receive Date: 20041214
  Receipt Date: 20040917
  Transmission Date: 20050328
  Serious: No
  Sender: FDA-Public Use
  Company Number: 2004226551US

PATIENT
  Sex: Female
  Weight: 83.9 kg

DRUGS (1)
  1. BEXTRA [Suspect]
     Indication: OSTEOARTHRITIS
     Dosage: 10 MG, QD
     Dates: start: 20040501, end: 20040724

REACTIONS (3)
  - COUGH [None]
  - RESPIRATORY DISORDER [None]
  - WEST NILE VIRAL INFECTION [None]
